FAERS Safety Report 16094137 (Version 1)
Quarter: 2019Q1

REPORT INFORMATION
  Report Type: Spontaneous
  Country: US (occurrence: US)
  Receive Date: 20190320
  Receipt Date: 20190320
  Transmission Date: 20190418
  Serious: Yes (Hospitalization, Other)
  Sender: FDA-Public Use
  Company Number: US-LUPIN PHARMACEUTICALS INC.-2019-01709

PATIENT
  Sex: Female
  Weight: 49.89 kg

DRUGS (2)
  1. ORPHENADRINE ER TABLET 100 MG [Suspect]
     Active Substance: ORPHENADRINE
     Indication: PRODUCT USED FOR UNKNOWN INDICATION
     Dosage: UNK UNK, BID
     Route: 065
  2. ORPHENADRINE ER TABLET 100 MG [Suspect]
     Active Substance: ORPHENADRINE
     Dosage: UNK (TAKEN 2 OR POSSIBLY 3 OF THESE TABLETS)
     Route: 065

REACTIONS (4)
  - Delirium [Not Recovered/Not Resolved]
  - Fall [Unknown]
  - Extra dose administered [Unknown]
  - Dizziness [Not Recovered/Not Resolved]
